FAERS Safety Report 11243714 (Version 1)
Quarter: 2015Q3

REPORT INFORMATION
  Report Type: Spontaneous
  Country: US (occurrence: US)
  Receive Date: 20150707
  Receipt Date: 20150707
  Transmission Date: 20151125
  Serious: No
  Sender: FDA-Public Use
  Company Number: US-DSJP-DSU-2014-125680

PATIENT
  Age: 49 Year
  Sex: Female
  Weight: 58.96 kg

DRUGS (5)
  1. WELCHOL [Suspect]
     Active Substance: COLESEVELAM HYDROCHLORIDE
     Dosage: 1250 MG, QOD
     Route: 048
     Dates: start: 201410
  2. WELCHOL [Suspect]
     Active Substance: COLESEVELAM HYDROCHLORIDE
     Indication: INFLAMMATION
     Dosage: 3750 MG, QD
     Route: 048
     Dates: start: 201310
  3. PROVENTIL                          /00139501/ [Concomitant]
     Indication: ASTHMA
     Dosage: UNK, AS NEEDED
  4. ALBUTEROL                          /00139501/ [Concomitant]
     Active Substance: ALBUTEROL
     Indication: ASTHMA
     Dosage: UNK
     Route: 049
  5. ZYRTEC [Concomitant]
     Active Substance: CETIRIZINE HYDROCHLORIDE
     Indication: PRODUCT USED FOR UNKNOWN INDICATION
     Dosage: UNK, AS NEEDED
     Route: 048

REACTIONS (5)
  - Chest discomfort [Recovering/Resolving]
  - Dysphonia [Recovering/Resolving]
  - Dyspepsia [Recovering/Resolving]
  - Off label use [Not Recovered/Not Resolved]
  - Diarrhoea [Recovering/Resolving]

NARRATIVE: CASE EVENT DATE: 201310
